FAERS Safety Report 10843269 (Version 1)
Quarter: 2015Q1

REPORT INFORMATION
  Report Type: Report from Study
  Country: US (occurrence: US)
  Receive Date: 20150220
  Receipt Date: 20150220
  Transmission Date: 20150721
  Serious: Yes (Hospitalization)
  Sender: FDA-Public Use
  Company Number: US-ABBVIE-14P-163-1261087-00

PATIENT
  Sex: Female
  Weight: 129.39 kg

DRUGS (3)
  1. HUMIRA [Suspect]
     Active Substance: ADALIMUMAB
     Indication: CROHN^S DISEASE
     Dates: start: 201305, end: 201305
  2. HUMIRA [Suspect]
     Active Substance: ADALIMUMAB
     Dates: start: 201305, end: 201305
  3. HUMIRA [Suspect]
     Active Substance: ADALIMUMAB
     Dates: start: 201306

REACTIONS (1)
  - Dyspnoea [Recovered/Resolved]

NARRATIVE: CASE EVENT DATE: 2014
